FAERS Safety Report 6221280-6 (Version None)
Quarter: 2009Q2

REPORT INFORMATION
  Report Type: 
  Country: None (occurrence: None)
  Receive Date: 20090610
  Receipt Date: 20090530
  Transmission Date: 20091009
  Serious: Yes (Other)
  Sender: FDA-Public Use
  Company Number: FR-MYLANLABS-2005S1010657

PATIENT
  Age: 8 Year
  Sex: Male

DRUGS (11)
  1. MERCAPTAMINE BITARTRATE [Suspect]
     Indication: CYSTINOSIS
     Route: 048
     Dates: start: 19980512
  2. MERCAPTAMINE BITARTRATE [Suspect]
     Route: 048
  3. MERCAPTAMINE BITARTRATE [Suspect]
     Dosage: 939.990 MG/M**2
     Route: 048
  4. MERCAPTAMINE BITARTRATE [Suspect]
     Dosage: 939.990 MG/M**2
     Route: 048
  5. MERCAPTAMINE BITARTRATE [Suspect]
     Dosage: 939.990 MG/M**2
     Route: 048
  6. MERCAPTAMINE BITARTRATE [Suspect]
     Dosage: 939.990 MG/M**2
     Route: 048
  7. MERCAPTAMINE BITARTRATE [Suspect]
     Dosage: 939.990 MG/M**2
     Route: 048
  8. MERCAPTAMINE BITARTRATE [Suspect]
     Dosage: 939.990 MG/M**2
     Route: 048
  9. POTASSIUM BICARBONATE [Concomitant]
     Dates: start: 19980104
  10. SODIUM BICARBONATE [Concomitant]
     Dates: start: 19980104
  11. ALPHACALCIDOL [Concomitant]
     Dates: start: 19980104

REACTIONS (2)
  - SKIN FRAGILITY [None]
  - SKIN STRIAE [None]
